FAERS Safety Report 13642292 (Version 1)
Quarter: 2017Q2

REPORT INFORMATION
  Report Type: Spontaneous
  Country: US (occurrence: US)
  Receive Date: 20170612
  Receipt Date: 20170612
  Transmission Date: 20170830
  Serious: No
  Sender: FDA-Public Use
  Company Number: US-SEPTODONT-201603328

PATIENT
  Age: 82 Year
  Sex: Male

DRUGS (4)
  1. LUPRON DEPOT   KIT [Concomitant]
  2. ZESTRIL [Concomitant]
     Active Substance: LISINOPRIL
  3. SEPTOCAINE AND EPINEPHRINE [Suspect]
     Active Substance: ARTICAINE HYDROCHLORIDE\EPINEPHRINE BITARTRATE
     Indication: LOCAL ANAESTHESIA
     Dosage: 1/2 CARPULE ADMINISTERED VIA INFILTRATION WITH MONOJECT 30G SHORT NEEDLE. EXTRACTION LL PREMOLAR
     Route: 004
     Dates: start: 20160322, end: 20160322
  4. HURRICAINE [Concomitant]
     Active Substance: BENZOCAINE
     Indication: LOCAL ANAESTHESIA
     Dosage: APPLIED PRIOR TO INJECTION
     Route: 061

REACTIONS (1)
  - Hyperhidrosis [Recovered/Resolved]

NARRATIVE: CASE EVENT DATE: 20160322
